FAERS Safety Report 7769157-9 (Version None)
Quarter: 2011Q3

REPORT INFORMATION
  Report Type: 
  Country: None (occurrence: None)
  Receive Date: 20110922
  Receipt Date: 20101022
  Transmission Date: 20111222
  Serious: No
  Sender: FDA-Public Use
  Company Number: US-ASTRAZENECA-2010SE50287

PATIENT
  Sex: Female

DRUGS (2)
  1. OTHER MEDICATIONS [Concomitant]
  2. SEROQUEL XR [Suspect]
     Indication: MAJOR DEPRESSION
     Route: 048

REACTIONS (2)
  - SLEEP APNOEA SYNDROME [None]
  - SOMNOLENCE [None]
